FAERS Safety Report 13618546 (Version 1)
Quarter: 2017Q2

REPORT INFORMATION
  Report Type: Spontaneous
  Country: TN (occurrence: TN)
  Receive Date: 20170606
  Receipt Date: 20170606
  Transmission Date: 20170830
  Serious: Yes (Other)
  Sender: FDA-Public Use
  Company Number: TN-BAYER-2017-106600

PATIENT
  Age: 38 Year
  Sex: Female
  Weight: 60 kg

DRUGS (1)
  1. ULTRAVIST [Suspect]
     Active Substance: IOPROMIDE
     Indication: COMPUTERISED TOMOGRAM
     Dosage: 80 ML, UNK

REACTIONS (3)
  - Urticaria [Recovering/Resolving]
  - Shock [Recovering/Resolving]
  - Emphysema [Recovering/Resolving]

NARRATIVE: CASE EVENT DATE: 20170421
